FAERS Safety Report 20889747 (Version 3)
Quarter: 2023Q2

REPORT INFORMATION
  Report Type: Spontaneous
  Country: GB (occurrence: GB)
  Receive Date: 20220530
  Receipt Date: 20230410
  Transmission Date: 20230722
  Serious: Yes (Hospitalization, Other)
  Sender: FDA-Public Use
  Company Number: GB-ORGANON-O2103GBR003039

PATIENT
  Age: 76 Year
  Sex: Female

DRUGS (6)
  1. ENALAPRIL [Suspect]
     Active Substance: ENALAPRIL
     Indication: Hypertension
     Dosage: 20 MILLIGRAM, ONCE A DAY
     Route: 048
     Dates: start: 202007
  2. ENALAPRIL MALEATE [Suspect]
     Active Substance: ENALAPRIL MALEATE
     Indication: Hypertension
     Dosage: 30 MILLIGRAM(INCREASED DOSE BY 10 MG)
     Route: 048
  3. ENALAPRIL MALEATE [Suspect]
     Active Substance: ENALAPRIL MALEATE
     Dosage: 20 MILLIGRAM, ONCE A DAY
     Route: 048
     Dates: start: 1986
  4. BISOPROLOL [Concomitant]
     Active Substance: BISOPROLOL
     Indication: Cardiac disorder
     Dosage: 1 DOSAGE FORM, ONCE A DAY
     Route: 065
  5. GAVISCON [Concomitant]
     Active Substance: ALUMINUM HYDROXIDE\MAGNESIUM CARBONATE
     Indication: Product used for unknown indication
     Dosage: UNK
     Route: 065
  6. VITAMIN D NOS [Concomitant]
     Active Substance: VITAMIN D NOS
     Indication: Product used for unknown indication
     Dosage: UNK
     Route: 065

REACTIONS (43)
  - Abdominal pain upper [Unknown]
  - Anal skin tags [Not Recovered/Not Resolved]
  - Arthralgia [Not Recovered/Not Resolved]
  - Atrophic vulvovaginitis [Not Recovered/Not Resolved]
  - Back pain [Not Recovered/Not Resolved]
  - Bladder irritation [Not Recovered/Not Resolved]
  - Burning sensation [Unknown]
  - Carpal tunnel decompression [Not Recovered/Not Resolved]
  - Constipation [Not Recovered/Not Resolved]
  - Decreased appetite [Unknown]
  - Depressed mood [Not Recovered/Not Resolved]
  - Discomfort [Unknown]
  - Dry eye [Not Recovered/Not Resolved]
  - Dyspnoea paroxysmal nocturnal [Not Recovered/Not Resolved]
  - Epicondylitis [Not Recovered/Not Resolved]
  - Feeling abnormal [Unknown]
  - Furuncle [Not Recovered/Not Resolved]
  - Gastric disorder [Unknown]
  - Glucose tolerance impaired [Not Recovered/Not Resolved]
  - Greater trochanteric pain syndrome [Not Recovered/Not Resolved]
  - Hyperglycaemia [Not Recovered/Not Resolved]
  - Hypertension [Not Recovered/Not Resolved]
  - Hypotension [Unknown]
  - Insomnia [Unknown]
  - Left ventricular failure [Not Recovered/Not Resolved]
  - Lipid metabolism disorder [Not Recovered/Not Resolved]
  - Obesity [Not Recovered/Not Resolved]
  - Osteoarthritis [Not Recovered/Not Resolved]
  - Osteoporosis [Not Recovered/Not Resolved]
  - Pain in extremity [Not Recovered/Not Resolved]
  - Polymyalgia rheumatica [Not Recovered/Not Resolved]
  - Rheumatoid arthritis [Not Recovered/Not Resolved]
  - Plantar fasciitis [Not Recovered/Not Resolved]
  - Radiculopathy [Not Recovered/Not Resolved]
  - Spinal osteoarthritis [Not Recovered/Not Resolved]
  - Surgery [Unknown]
  - Vitamin D deficiency [Not Recovered/Not Resolved]
  - Counterfeit product administered [Unknown]
  - Drug diversion [Unknown]
  - Product availability issue [Unknown]
  - Product dose omission issue [Unknown]
  - Product label counterfeit [Unknown]
  - Suspected counterfeit product [Unknown]

NARRATIVE: CASE EVENT DATE: 19910101
